FAERS Safety Report 10560569 (Version 2)
Quarter: 2016Q3

REPORT INFORMATION
  Report Type: Spontaneous
  Country: US (occurrence: US)
  Receive Date: 20141103
  Receipt Date: 20160922
  Transmission Date: 20161109
  Serious: Yes (Other)
  Sender: FDA-Public Use
  Company Number: US-SA-2014SA116170

PATIENT
  Age: 61 Year
  Sex: Female

DRUGS (4)
  1. TYLENOL [Concomitant]
     Active Substance: ACETAMINOPHEN
     Indication: PREMEDICATION
     Route: 048
  2. ESTROGEN NOS [Concomitant]
     Active Substance: ESTROGENS
  3. BENADRYL [Concomitant]
     Active Substance: DIPHENHYDRAMINE HYDROCHLORIDE
     Indication: PREMEDICATION
     Route: 042
  4. LUMIZYME [Suspect]
     Active Substance: ALGLUCOSIDASE ALFA
     Indication: GLYCOGEN STORAGE DISEASE TYPE II
     Route: 041
     Dates: start: 20120812, end: 2016

REACTIONS (7)
  - Malaise [Recovered/Resolved]
  - Type I hypersensitivity [Recovered/Resolved]
  - Underdose [Unknown]
  - Feeling abnormal [Recovered/Resolved]
  - Decreased appetite [Recovered/Resolved]
  - Rash [Recovered/Resolved]
  - Pneumonia [Unknown]

NARRATIVE: CASE EVENT DATE: 2014
